FAERS Safety Report 9439086 (Version 1)
Quarter: 2013Q3

REPORT INFORMATION
  Report Type: Spontaneous
  Country: GB (occurrence: GB)
  Receive Date: 20130802
  Receipt Date: 20130802
  Transmission Date: 20140515
  Serious: Yes (Other)
  Sender: FDA-Public Use
  Company Number: GB-WATSON-2013-13614

PATIENT
  Age: 62 Year
  Sex: Female

DRUGS (1)
  1. TRIMETHOPRIM (UNKNOWN) [Suspect]
     Indication: URINARY TRACT INFECTION
     Dosage: 200 MG, BID
     Route: 048

REACTIONS (6)
  - Oedema mouth [Unknown]
  - Muscular weakness [Unknown]
  - Dysphagia [Unknown]
  - Motor dysfunction [Unknown]
  - Fatigue [Unknown]
  - Dry mouth [Unknown]
